FAERS Safety Report 5698672-7 (Version None)
Quarter: 2008Q2

REPORT INFORMATION
  Report Type: 
  Country: None (occurrence: None)
  Receive Date: 20080408
  Receipt Date: 20070129
  Transmission Date: 20081010
  Serious: No
  Sender: FDA-Public Use
  Company Number: US-BAYER-US-2007-003698

PATIENT
  Age: 53 Year
  Sex: Female
  Weight: 58 kg

DRUGS (4)
  1. CLIMARA [Suspect]
     Route: 062
     Dates: start: 20060501
  2. NEXIUM [Concomitant]
     Indication: GALLBLADDER DISORDER
     Route: 048
  3. CHLORDIAZEPOXIDE W/CLIDINIUM BROMIDE [Concomitant]
     Indication: GALLBLADDER DISORDER
     Route: 048
  4. DICYCLOMINE [Concomitant]
     Indication: GALLBLADDER DISORDER
     Route: 048

REACTIONS (3)
  - GALLBLADDER DISORDER [None]
  - HOT FLUSH [None]
  - PHARMACEUTICAL PRODUCT COMPLAINT [None]
